FAERS Safety Report 15121622 (Version 1)
Quarter: 2018Q3

REPORT INFORMATION
  Report Type: Spontaneous
  Country: US (occurrence: US)
  Receive Date: 20180613
  Receipt Date: 20180613
  Transmission Date: 20181010
  Serious: Yes (Hospitalization)
  Sender: FDA-Public Use
  Company Number: None

PATIENT
  Age: 56 Year
  Sex: Male
  Weight: 104 kg

DRUGS (2)
  1. ZICONOTIDE [Suspect]
     Active Substance: ZICONOTIDE
     Indication: PAIN
     Dosage: ?          OTHER FREQUENCY:CONTINUOUS INFUSIO;?
     Route: 037
     Dates: start: 20180313, end: 20180608
  2. ZICONOTIDE [Suspect]
     Active Substance: ZICONOTIDE
     Indication: MUSCLE SPASTICITY
     Dosage: ?          OTHER FREQUENCY:CONTINUOUS INFUSIO;?
     Route: 037
     Dates: start: 20180313, end: 20180608

REACTIONS (7)
  - Asthenia [None]
  - Hypotension [None]
  - Diarrhoea [None]
  - Blood creatine phosphokinase increased [None]
  - Paralysis [None]
  - Infection [None]
  - Myositis [None]

NARRATIVE: CASE EVENT DATE: 20180608
